FAERS Safety Report 19635737 (Version 1)
Quarter: 2021Q3

REPORT INFORMATION
  Report Type: Spontaneous
  Country: PT (occurrence: PT)
  Receive Date: 20210729
  Receipt Date: 20210729
  Transmission Date: 20211014
  Serious: Yes (Hospitalization, Other)
  Sender: FDA-Public Use
  Company Number: PT-GLAXOSMITHKLINE-PT2021GSK162063

PATIENT
  Sex: Female
  Weight: .88 kg

DRUGS (2)
  1. VALACICLOVIR [Suspect]
     Active Substance: VALACYCLOVIR HYDROCHLORIDE
     Indication: CYTOMEGALOVIRUS INFECTION
     Dosage: 8 G PER DAY
     Route: 064
  2. VALACICLOVIR [Suspect]
     Active Substance: VALACYCLOVIR HYDROCHLORIDE
     Indication: CONGENITAL CYTOMEGALOVIRUS INFECTION
     Dosage: 16 MG/KG, BID (TWO TIMES PER DAY)
     Route: 048

REACTIONS (10)
  - Hyperbilirubinaemia [Unknown]
  - Premature baby [Unknown]
  - Foetal growth restriction [Unknown]
  - Foetal distress syndrome [Unknown]
  - Calcinosis [Unknown]
  - Leukopenia [Unknown]
  - Foetal exposure during pregnancy [Unknown]
  - Condition aggravated [Unknown]
  - Gamma-glutamyltransferase increased [Unknown]
  - Neutropenia [Unknown]
